FAERS Safety Report 5387725-9 (Version None)
Quarter: 2007Q3

REPORT INFORMATION
  Report Type: 
  Country: None (occurrence: None)
  Receive Date: 20070716
  Receipt Date: 20070712
  Transmission Date: 20080115
  Serious: Yes (Hospitalization, Other)
  Sender: FDA-Public Use
  Company Number: A0664037A

PATIENT
  Age: 43 Year
  Sex: Female
  Weight: 80 kg

DRUGS (6)
  1. SERETIDE [Suspect]
     Indication: BRONCHOSPASM
     Route: 055
     Dates: start: 20030701, end: 20030801
  2. SERETIDE [Suspect]
     Route: 055
     Dates: start: 20040101
  3. BAMIFIX [Concomitant]
     Dates: start: 20040101
  4. INDAPAMIDE [Concomitant]
     Dates: start: 20060701
  5. METHYLDOPA [Concomitant]
     Dates: start: 20070101
  6. FEXOFENADINE [Concomitant]
     Dates: start: 20040101

REACTIONS (5)
  - DRUG INEFFECTIVE [None]
  - DRY MOUTH [None]
  - DYSGEUSIA [None]
  - OTORRHOEA [None]
  - SINUS OPERATION [None]
